FAERS Safety Report 7311161-9 (Version None)
Quarter: 2011Q1

REPORT INFORMATION
  Report Type: 
  Country: None (occurrence: None)
  Receive Date: 20110214
  Receipt Date: 20110128
  Transmission Date: 20110831
  Serious: Yes (Hospitalization, Other)
  Sender: FDA-Public Use
  Company Number: GER/UKI/10/0013057

PATIENT
  Age: 23 Year
  Sex: Female

DRUGS (3)
  1. SUMATRIPTAN SUCCINATE [Suspect]
     Indication: HEADACHE
     Dosage: 25 MG, ORAL
     Route: 048
  2. DIPYRIDAMOLE [Suspect]
     Indication: ANTIPLATELET THERAPY
     Dosage: 200 MG
  3. ASPIRIN (ACETYLSALICYLIC ACID) [Suspect]
     Indication: ANTIPLATELET THERAPY
     Dosage: 300 MG

REACTIONS (5)
  - THROMBOCYTOPENIA [None]
  - NAUSEA [None]
  - MUCOSAL HAEMORRHAGE [None]
  - ISCHAEMIC STROKE [None]
  - PYREXIA [None]
